FAERS Safety Report 4628553-9 (Version None)
Quarter: 2005Q2

REPORT INFORMATION
  Report Type: 
  Country: None (occurrence: None)
  Receive Date: 20050404
  Receipt Date: 20050318
  Transmission Date: 20051028
  Serious: Yes (Other)
  Sender: FDA-Public Use
  Company Number: 213224

PATIENT
  Age: 59 Year
  Sex: Male

DRUGS (2)
  1. RAPTIVA [Suspect]
     Indication: PSORIASIS
     Dosage: SUBCUTANEOUS
     Route: 058
     Dates: start: 20040701
  2. ACITRETIN (ACITRETIN) [Concomitant]

REACTIONS (1)
  - HEPATITIS [None]
